FAERS Safety Report 20931982 (Version 1)
Quarter: 2022Q2

REPORT INFORMATION
  Report Type: Spontaneous
  Country: CH (occurrence: CH)
  Receive Date: 20220608
  Receipt Date: 20220608
  Transmission Date: 20220720
  Serious: Yes (Hospitalization)
  Sender: FDA-Public Use
  Company Number: None

PATIENT
  Age: 85 Year
  Sex: Male

DRUGS (9)
  1. MABTHERA [Suspect]
     Active Substance: RITUXIMAB
     Indication: Lymphoma
     Dosage: MABTHERA (RITUXIMAB) 375 MG/M2 INTRAVENOUS APPLICATION ON 02/10/2022, MOST RECENT DOSE ADMINISTERED
     Route: 041
     Dates: start: 20220210
  2. METHOTREXATE [Suspect]
     Active Substance: METHOTREXATE
     Indication: Lymphoma
     Dosage: METHOTREXATE HIGH-DOSE THERAPY 3 G PER M2 INTRAVENOUS APPLICATION ON JANUARY 22, 2022 AND ON FEBRUAR
     Route: 042
     Dates: start: 20220210, end: 20220210
  3. METHOTREXATE [Suspect]
     Active Substance: METHOTREXATE
     Dosage: METHOTREXATE HIGH-DOSE THERAPY 3 G/M2 INTRAVENOUS APPLICATION ON JANUARY 22, 2022 AND ON FEBRUARY 10
     Route: 042
     Dates: start: 20220122, end: 20220122
  4. GADOLINIUM [Suspect]
     Active Substance: GADOLINIUM
     Indication: Magnetic resonance imaging
     Dosage: GADOLINIUM-CONTAINING CONTRAST AGENT (EXACT PRODUCT NOT KNOWN) ON 02/18/2022, NO MORE PRECISE...,  M
     Route: 065
     Dates: start: 20220218, end: 20220218
  5. ESOMEPRAZOLE [Suspect]
     Active Substance: ESOMEPRAZOLE
     Indication: Product used for unknown indication
     Dosage: NEXIUM MUPS (ESOMEPRAZOLE) 20 MG ORAL INTAKE 1-0-0-0 SINCE AT LEAST 01/26/2022 UNTIL 22....
     Route: 048
     Dates: start: 20220126, end: 20220222
  6. ESOMEPRAZOLE [Suspect]
     Active Substance: ESOMEPRAZOLE
     Dosage: NEXIUM MUPS (ESOMEPRAZOLE) 20 MG ORAL INTAKE 1-0-0-0 SINCE AT LEAST 01/26/2022 UNTIL 22....
     Route: 048
     Dates: start: 20220126, end: 20220222
  7. AMITRIPTYLINE [Suspect]
     Active Substance: AMITRIPTYLINE
     Indication: Product used for unknown indication
     Dosage: SAROTEN (AMITRIPTYLINE) 25 MG ORAL INTAKE 0-0-0-1 SINCE AT LEAST 02/15/2022 UNTIL 02/22....
     Route: 048
     Dates: start: 20220215, end: 20220222
  8. LAXIPEG [Concomitant]
     Dosage: LAXIPEG (MACROGOL 4000) 1 SACHET/DAY
     Route: 048
  9. MOTILIUM [Concomitant]
     Active Substance: DOMPERIDONE
     Dosage: MOTILIUM (DOMPERIDON) 10 MG IN RESERVE BEI BEDARF MAXIMAL 1X/24H	 ; AS NECESSARY
     Route: 048

REACTIONS (4)
  - Acute kidney injury [Recovering/Resolving]
  - Drug interaction [Recovering/Resolving]
  - Neutropenia [Recovered/Resolved]
  - Pancytopenia [Recovered/Resolved]

NARRATIVE: CASE EVENT DATE: 20220223
